FAERS Safety Report 9424993 (Version 1)
Quarter: 2013Q3

REPORT INFORMATION
  Report Type: Spontaneous
  Country: US (occurrence: US)
  Receive Date: 20130729
  Receipt Date: 20130729
  Transmission Date: 20140515
  Serious: No
  Sender: FDA-Public Use
  Company Number: US-PFIZER INC-2013219348

PATIENT
  Age: 59 Year
  Sex: Female
  Weight: 82.09 kg

DRUGS (2)
  1. LYRICA [Suspect]
     Indication: FIBROMYALGIA
     Dosage: 200 MG, 2X/DAY
     Dates: start: 2009
  2. LYRICA [Suspect]
     Dosage: 200 MG, 1X/DAY
     Dates: start: 201301

REACTIONS (3)
  - Intentional drug misuse [Unknown]
  - Vitamin D decreased [Unknown]
  - Blood parathyroid hormone increased [Unknown]
